FAERS Safety Report 9801085 (Version 2)
Quarter: 2014Q2

REPORT INFORMATION
  Report Type: Spontaneous
  Country: US (occurrence: US)
  Receive Date: 20140107
  Receipt Date: 20140613
  Transmission Date: 20141212
  Serious: No
  Sender: FDA-Public Use
  Company Number: US-B.I. PHARMACEUTICALS,INC./RIDGEFIELD-2013-BI-43823BP

PATIENT
  Sex: Female
  Weight: 84 kg

DRUGS (22)
  1. COMBIVENT [Suspect]
     Indication: CHRONIC OBSTRUCTIVE PULMONARY DISEASE
     Dosage: STRENGTH: 20 MCG / 100 MCG; DAILY DOSE: 120 MCG / 600 MCG
     Route: 055
     Dates: start: 2013
  2. HYDROXYCHLOROQUINE [Concomitant]
     Indication: SYSTEMIC LUPUS ERYTHEMATOSUS
     Dosage: 400 MG
     Route: 048
  3. EX LAX [Concomitant]
     Indication: FAECES HARD
     Route: 048
  4. RANTITIDINE [Concomitant]
     Indication: OESOPHAGEAL SPASM
     Dosage: 600 MG
     Route: 048
  5. CLONAZEPAM [Concomitant]
     Indication: RESTLESS LEGS SYNDROME
     Dosage: 15 MG
     Route: 048
  6. TIZANIDINE [Concomitant]
     Indication: FIBROMYALGIA
     Dosage: 24 MG
     Route: 048
  7. ISOSORBIDE [Concomitant]
     Indication: MITRAL VALVE STENOSIS
     Dosage: 30 MG
     Route: 048
  8. TRAZODONE [Concomitant]
     Indication: SLEEP DISORDER
     Dosage: 450 MG
     Route: 048
  9. CITRACAL [Concomitant]
     Indication: BONE DISORDER
     Route: 048
  10. SYMBICORT [Concomitant]
     Indication: CHRONIC OBSTRUCTIVE PULMONARY DISEASE
     Route: 055
  11. MECLIZINE [Concomitant]
     Indication: VERTIGO
     Dosage: 100 MG
     Route: 048
  12. CITALOPRAM [Concomitant]
     Indication: DEPRESSION
     Dosage: 20 MG
     Route: 048
  13. LYRICA [Concomitant]
     Indication: SYSTEMIC LUPUS ERYTHEMATOSUS
     Dosage: 600 MG
     Route: 048
  14. LYRICA [Concomitant]
     Indication: FIBROMYALGIA
  15. VITAMIN D [Concomitant]
     Indication: OSTEOMALACIA
     Dosage: 50000 U
     Route: 048
  16. VITAMIN D [Concomitant]
     Indication: OSTEOPOROSIS
  17. DEXILANT DR [Concomitant]
     Indication: DYSPEPSIA
     Dosage: 60 MG
     Route: 048
  18. IRON [Concomitant]
     Indication: IRON DEFICIENCY
     Dosage: 28 MG
     Route: 048
  19. HAIR, SKIN AND NAIL FORMULA [Concomitant]
     Indication: HAIR DISORDER
     Route: 048
  20. HAIR, SKIN AND NAIL FORMULA [Concomitant]
     Indication: SKIN DISORDER
  21. HAIR, SKIN AND NAIL FORMULA [Concomitant]
     Indication: NAIL DISORDER
  22. CETIRIZINE [Concomitant]
     Dosage: 10 MG
     Route: 048

REACTIONS (2)
  - Dyspnoea [Not Recovered/Not Resolved]
  - Product quality issue [Not Recovered/Not Resolved]
